FAERS Safety Report 17798815 (Version 1)
Quarter: 2020Q2

REPORT INFORMATION
  Report Type: Report from Study
  Country: ES (occurrence: ES)
  Receive Date: 20200518
  Receipt Date: 20200518
  Transmission Date: 20200714
  Serious: Yes (Life-Threatening)
  Sender: FDA-Public Use
  Company Number: ES-TEVA-2020-ES-1235533

PATIENT
  Age: 80 Year
  Sex: Female
  Weight: 57 kg

DRUGS (1)
  1. EVEROLIMUS (2916A) [Suspect]
     Active Substance: EVEROLIMUS
     Indication: HORMONE RECEPTOR POSITIVE BREAST CANCER
     Dosage: 5MG
     Route: 048
     Dates: start: 20160621, end: 20160830

REACTIONS (2)
  - Urinary tract infection [Recovered/Resolved]
  - Anaemia [Recovered/Resolved]

NARRATIVE: CASE EVENT DATE: 20160629
